FAERS Safety Report 6535511-6 (Version None)
Quarter: 2010Q1

REPORT INFORMATION
  Report Type: 
  Country: None (occurrence: None)
  Receive Date: 20100113
  Receipt Date: 20100111
  Transmission Date: 20100710
  Serious: Yes (Death, Hospitalization, Other)
  Sender: FDA-Public Use
  Company Number: BR-SANOFI-AVENTIS-2009SA006632

PATIENT
  Age: 63 Year
  Sex: Male
  Weight: 88 kg

DRUGS (1)
  1. AMARYL [Suspect]
     Route: 048
     Dates: start: 19990101, end: 20091014

REACTIONS (6)
  - CEREBROVASCULAR ACCIDENT [None]
  - DIZZINESS [None]
  - FACIAL PARESIS [None]
  - HEMIPLEGIA [None]
  - HEPATIC NEOPLASM MALIGNANT [None]
  - MUSCULAR WEAKNESS [None]
